FAERS Safety Report 4310391-8 (Version None)
Quarter: 2004Q1

REPORT INFORMATION
  Report Type: 
  Country: None (occurrence: None)
  Receive Date: 20040302
  Receipt Date: 20040212
  Transmission Date: 20041129
  Serious: Yes (Hospitalization)
  Sender: FDA-Public Use
  Company Number: F01200400255

PATIENT
  Age: 72 Year
  Sex: Male

DRUGS (4)
  1. OXALIPLATIN [Suspect]
     Indication: COLORECTAL CANCER METASTATIC
     Dosage: 278 MG Q3W INTRAVENOUS NOS
     Route: 042
     Dates: start: 20031125, end: 20031125
  2. CAPECITABINE - TABLET - 1000 MG [Suspect]
     Dosage: 1000 MG TWICE A DAY FROM D1 TO D14, Q3W ORAL
     Route: 048
     Dates: start: 20031125, end: 20031203
  3. ACETYLSALICYLIC ACID SRT [Concomitant]
  4. FERROUS SULFATE TAB [Concomitant]

REACTIONS (10)
  - ABDOMINAL PAIN [None]
  - CONSTIPATION [None]
  - DIARRHOEA [None]
  - ELECTROCARDIOGRAM ST-T SEGMENT ABNORMAL [None]
  - ENTERITIS [None]
  - HYPOKALAEMIA [None]
  - MALAISE [None]
  - NAUSEA [None]
  - NEUTROPENIA [None]
  - PYREXIA [None]
